FAERS Safety Report 9934330 (Version 1)
Quarter: 2014Q1

REPORT INFORMATION
  Report Type: Spontaneous
  Country: US (occurrence: US)
  Receive Date: 20140228
  Receipt Date: 20140228
  Transmission Date: 20141002
  Serious: No
  Sender: FDA-Public Use
  Company Number: US-ABBVIE-14P-163-1189788-00

PATIENT
  Age: 52 Year
  Sex: Male
  Weight: 65.83 kg

DRUGS (3)
  1. ANDROGEL [Suspect]
     Indication: BLOOD TESTOSTERONE DECREASED
     Dates: start: 20140110
  2. PRILOSEC [Concomitant]
     Indication: DYSPEPSIA
  3. ASPIRIN [Concomitant]
     Indication: HEADACHE

REACTIONS (1)
  - Muscle spasms [Recovered/Resolved]
